FAERS Safety Report 6389417-6 (Version None)
Quarter: 2009Q4

REPORT INFORMATION
  Report Type: 
  Country: None (occurrence: None)
  Receive Date: 20091006
  Receipt Date: 20090928
  Transmission Date: 20100525
  Serious: No
  Sender: FDA-Public Use
  Company Number: US-JNJFOC-20091001034

PATIENT
  Sex: Female
  Weight: 88.45 kg

DRUGS (1)
  1. DURAGESIC MATRIX [Suspect]
     Indication: PAIN
     Dosage: 100 UG/HR + 75 UG/HR PATCH
     Route: 062

REACTIONS (4)
  - BEDRIDDEN [None]
  - DRUG INEFFECTIVE [None]
  - INAPPROPRIATE SCHEDULE OF DRUG ADMINISTRATION [None]
  - PRODUCT QUALITY ISSUE [None]
